FAERS Safety Report 13894129 (Version 1)
Quarter: 2017Q3

REPORT INFORMATION
  Report Type: Spontaneous
  Country: US (occurrence: US)
  Receive Date: 20170816
  Receipt Date: 20170816
  Transmission Date: 20171127
  Serious: Yes (Life-Threatening, Hospitalization)
  Sender: FDA-Public Use
  Company Number: None

PATIENT
  Age: 74 Year
  Sex: Male
  Weight: 73.8 kg

DRUGS (2)
  1. REVLIMID [Suspect]
     Active Substance: LENALIDOMIDE
     Indication: PLASMA CELL MYELOMA
     Route: 048
     Dates: start: 20170724, end: 20170810
  2. VELCADE [Concomitant]
     Active Substance: BORTEZOMIB

REACTIONS (5)
  - Thrombocytopenia [None]
  - Cardiac failure congestive [None]
  - Ecchymosis [None]
  - Oedema [None]
  - Acute myocardial infarction [None]

NARRATIVE: CASE EVENT DATE: 20170811
